FAERS Safety Report 4442474-6 (Version None)
Quarter: 2004Q3

REPORT INFORMATION
  Report Type: 
  Country: None (occurrence: None)
  Receive Date: 20040903
  Receipt Date: 20040707
  Transmission Date: 20050211
  Serious: Yes (Other)
  Sender: FDA-Public Use
  Company Number: 2004UW14007

PATIENT
  Age: 59 Year
  Sex: Female
  Weight: 84.369 kg

DRUGS (5)
  1. CRESTOR [Suspect]
     Indication: BLOOD CHOLESTEROL INCREASED
     Dosage: 10 MG QD PO
     Route: 048
     Dates: start: 20040505, end: 20040616
  2. EVISTA [Concomitant]
  3. TOPROL-XL [Concomitant]
  4. HYDROCHLOROTHIAZIDE [Concomitant]
  5. BEXTRA [Concomitant]

REACTIONS (8)
  - AGITATION [None]
  - BLOOD PRESSURE INCREASED [None]
  - HOT FLUSH [None]
  - INSOMNIA [None]
  - NIGHTMARE [None]
  - OEDEMA PERIPHERAL [None]
  - POLLAKIURIA [None]
  - RENAL PAIN [None]
